FAERS Safety Report 4318407-X (Version None)
Quarter: 2004Q1

REPORT INFORMATION
  Report Type: 
  Country: None (occurrence: None)
  Receive Date: 20040315
  Receipt Date: 20040310
  Transmission Date: 20041129
  Serious: No
  Sender: FDA-Public Use
  Company Number: 2004UW03376

PATIENT
  Age: 31 Year
  Sex: Male

DRUGS (5)
  1. SEROQUEL [Suspect]
  2. CLOZARIL [Suspect]
  3. TOPAMAX [Suspect]
  4. LAMOTRIGINE [Concomitant]
  5. VALPROIC ACID [Concomitant]

REACTIONS (3)
  - AGRANULOCYTOSIS [None]
  - LEUKOPENIA [None]
  - NEUTROPENIA [None]
